FAERS Safety Report 4644706-8 (Version None)
Quarter: 2005Q2

REPORT INFORMATION
  Report Type: 
  Country: None (occurrence: None)
  Receive Date: 20050422
  Receipt Date: 20050411
  Transmission Date: 20051028
  Serious: Yes (Hospitalization)
  Sender: FDA-Public Use
  Company Number: RS005116-F

PATIENT
  Age: 48 Year
  Sex: Male

DRUGS (1)
  1. RABEPRAZOLE SODIUM [Suspect]
     Indication: GASTROOESOPHAGEAL REFLUX DISEASE
     Dosage: ORAL
     Route: 048
     Dates: end: 20050101

REACTIONS (3)
  - HYPEREOSINOPHILIC SYNDROME [None]
  - HYPERSENSITIVITY [None]
  - PYREXIA [None]
